FAERS Safety Report 8890863 (Version 1)
Quarter: 2012Q4

REPORT INFORMATION
  Report Type: 
  Country: FI (occurrence: FI)
  Receive Date: 20121106
  Receipt Date: 20121106
  Transmission Date: 20130627
  Serious: Yes (Hospitalization, Other)
  Sender: FDA-Public Use
  Company Number: FI-ELI_LILLY_AND_COMPANY-FI201210008414

PATIENT
  Age: 37 Year
  Sex: Female

DRUGS (2)
  1. CYMBALTA [Suspect]
     Indication: DEPRESSION
     Dosage: 60 mg, qd
  2. CYMBALTA [Suspect]
     Dosage: 60 mg, qd
     Dates: start: 20120803

REACTIONS (5)
  - Abortion spontaneous [Recovered/Resolved]
  - Nausea [Unknown]
  - Drug withdrawal syndrome [Recovered/Resolved]
  - Nausea [Unknown]
  - Exposure during pregnancy [Unknown]
